FAERS Safety Report 5054409-6 (Version None)
Quarter: 2006Q3

REPORT INFORMATION
  Report Type: 
  Country: None (occurrence: None)
  Receive Date: 20060713
  Receipt Date: 20060509
  Transmission Date: 20061208
  Serious: Yes (Hospitalization)
  Sender: FDA-Public Use
  Company Number: 2006-05-0659

PATIENT
  Age: 66 Year
  Sex: Male
  Weight: 64 kg

DRUGS (4)
  1. DACARBAZINE [Suspect]
     Indication: METASTATIC MALIGNANT MELANOMA
     Dosage: 1730-1710 MG INTRAVENOUS
     Route: 042
     Dates: start: 20051010, end: 20060501
  2. NEXIUM [Concomitant]
  3. ATIVAN [Concomitant]
  4. EMEND [Concomitant]

REACTIONS (2)
  - ANEURYSM [None]
  - BACK PAIN [None]
